FAERS Safety Report 21626560 (Version 1)
Quarter: 2022Q4

REPORT INFORMATION
  Report Type: Other
  Country: BR (occurrence: None)
  Receive Date: 20221122
  Receipt Date: 20221122
  Transmission Date: 20230113
  Serious: Yes (Other)
  Sender: FDA-Public Use
  Company Number: BR-ROCHE-3221041

PATIENT
  Age: 62 Year
  Sex: Male

DRUGS (5)
  1. TRASTUZUMAB [Suspect]
     Active Substance: TRASTUZUMAB
     Indication: Salivary gland cancer
     Dosage: MAINTENANCE EVERY 3 WEEKS
     Route: 065
  2. CAPECITABINE [Suspect]
     Active Substance: CAPECITABINE
     Indication: Salivary gland cancer
     Route: 065
  3. DOCETAXEL [Suspect]
     Active Substance: DOCETAXEL
     Indication: Salivary gland cancer
     Route: 065
  4. CARBOPLATIN [Suspect]
     Active Substance: CARBOPLATIN
     Indication: Salivary gland cancer
     Route: 065
  5. TUCATINIB [Suspect]
     Active Substance: TUCATINIB
     Indication: Salivary gland cancer
     Route: 065

REACTIONS (2)
  - Metastases to central nervous system [Unknown]
  - Disease progression [Unknown]
